FAERS Safety Report 24035837 (Version 1)
Quarter: 2024Q2

REPORT INFORMATION
  Report Type: Spontaneous
  Country: US (occurrence: None)
  Receive Date: 20240628
  Receipt Date: 20240628
  Transmission Date: 20240716
  Serious: Yes (Life-Threatening, Disabling)
  Sender: FDA-Public Use
  Company Number: None

PATIENT
  Age: 73 Year
  Sex: Female
  Weight: 47.17 kg

DRUGS (5)
  1. TETRACAINE [Suspect]
     Active Substance: TETRACAINE
     Indication: Local anaesthesia
     Dates: start: 20240503, end: 20240507
  2. AFRIN [Suspect]
     Active Substance: OXYMETAZOLINE
  3. MULTI VITAMINS + MINERALS [Concomitant]
  4. UNSPECIFIED INGREDIENT [Concomitant]
     Active Substance: UNSPECIFIED INGREDIENT
  5. UNSPECIFIED INGREDIENT [Concomitant]
     Active Substance: UNSPECIFIED INGREDIENT

REACTIONS (10)
  - Panic attack [None]
  - Blood pressure increased [None]
  - Heart rate increased [None]
  - Tremor [None]
  - Gait inability [None]
  - Epistaxis [None]
  - Asthenia [None]
  - Stress [None]
  - Bedridden [None]
  - Burning sensation [None]

NARRATIVE: CASE EVENT DATE: 20240303
